FAERS Safety Report 18984580 (Version 3)
Quarter: 2021Q1

REPORT INFORMATION
  Report Type: Report from Study
  Country: None (occurrence: CA)
  Receive Date: 20210309
  Receipt Date: 20210323
  Transmission Date: 20210420
  Serious: Yes (Hospitalization, Other)
  Sender: FDA-Public Use
  Company Number: CA-ABBVIE-21K-028-3805552-00

PATIENT
  Sex: Female

DRUGS (1)
  1. RINVOQ [Suspect]
     Active Substance: UPADACITINIB
     Indication: RHEUMATOID ARTHRITIS
     Route: 048
     Dates: start: 20201112

REACTIONS (7)
  - Gastrointestinal haemorrhage [Unknown]
  - Diarrhoea [Unknown]
  - Anaemia [Unknown]
  - Hospitalisation [Unknown]
  - Malaise [Unknown]
  - Vomiting [Unknown]
  - Cardiac valve disease [Unknown]
